FAERS Safety Report 5920894-8 (Version None)
Quarter: 2008Q4

REPORT INFORMATION
  Report Type: 
  Country: None (occurrence: None)
  Receive Date: 20081016
  Receipt Date: 20081013
  Transmission Date: 20090506
  Serious: Yes (Other)
  Sender: FDA-Public Use
  Company Number: US-BRISTOL-MYERS SQUIBB COMPANY-14367510

PATIENT
  Age: 75 Year
  Sex: Female

DRUGS (6)
  1. ERBITUX [Suspect]
     Indication: ADENOCARCINOMA PANCREAS
     Route: 042
  2. GEMZAR [Suspect]
     Indication: ADENOCARCINOMA PANCREAS
     Route: 042
  3. RADIOTHERAPY [Suspect]
     Indication: ADENOCARCINOMA PANCREAS
  4. DECADRON [Concomitant]
     Indication: PREMEDICATION
     Route: 042
  5. ZOFRAN [Concomitant]
     Indication: PREMEDICATION
     Route: 042
  6. BENADRYL [Concomitant]
     Indication: PREMEDICATION
     Route: 042

REACTIONS (2)
  - DEEP VEIN THROMBOSIS [None]
  - PLATELET COUNT DECREASED [None]
